FAERS Safety Report 14207622 (Version 2)
Quarter: 2017Q4

REPORT INFORMATION
  Report Type: Spontaneous
  Country: US (occurrence: US)
  Receive Date: 20171121
  Receipt Date: 20171130
  Transmission Date: 20180321
  Serious: Yes (Other)
  Sender: FDA-Public Use
  Company Number: US-JNJFOC-20171028308

PATIENT
  Age: 72 Year
  Sex: Male

DRUGS (8)
  1. IMBRUVICA [Suspect]
     Active Substance: IBRUTINIB
     Indication: WALDENSTROM^S MACROGLOBULINAEMIA
     Route: 048
     Dates: start: 201701, end: 2017
  2. IMBRUVICA [Suspect]
     Active Substance: IBRUTINIB
     Indication: B-CELL SMALL LYMPHOCYTIC LYMPHOMA
     Route: 048
     Dates: start: 201701, end: 2017
  3. LISINOPRIL. [Concomitant]
     Active Substance: LISINOPRIL
  4. IMBRUVICA [Suspect]
     Active Substance: IBRUTINIB
     Indication: WALDENSTROM^S MACROGLOBULINAEMIA
     Route: 048
     Dates: start: 20161229
  5. IMBRUVICA [Suspect]
     Active Substance: IBRUTINIB
     Indication: B-CELL SMALL LYMPHOCYTIC LYMPHOMA
     Route: 048
     Dates: start: 201711
  6. BETAMETHASONE. [Concomitant]
     Active Substance: BETAMETHASONE
  7. IMBRUVICA [Suspect]
     Active Substance: IBRUTINIB
     Indication: WALDENSTROM^S MACROGLOBULINAEMIA
     Route: 048
     Dates: start: 201711
  8. IMBRUVICA [Suspect]
     Active Substance: IBRUTINIB
     Indication: B-CELL SMALL LYMPHOCYTIC LYMPHOMA
     Route: 048
     Dates: start: 20161229

REACTIONS (11)
  - Left atrial enlargement [Unknown]
  - Leukopenia [Unknown]
  - Skin discolouration [Unknown]
  - Muscular weakness [Unknown]
  - Osteoarthritis [Unknown]
  - Left ventricular dysfunction [Unknown]
  - Fatigue [Unknown]
  - Rotator cuff syndrome [Unknown]
  - Mitral valve incompetence [Unknown]
  - Atrial fibrillation [Recovering/Resolving]
  - Muscle atrophy [Unknown]

NARRATIVE: CASE EVENT DATE: 20170818
